FAERS Safety Report 18914779 (Version 2)
Quarter: 2021Q2

REPORT INFORMATION
  Report Type: Spontaneous
  Country: JP (occurrence: JP)
  Receive Date: 20210219
  Receipt Date: 20210520
  Transmission Date: 20210717
  Serious: Yes (Hospitalization, Other)
  Sender: FDA-Public Use
  Company Number: NVSJ2021JP002533

PATIENT
  Age: 81 Year
  Sex: Male

DRUGS (9)
  1. ULTIBRO INHALATION CAPSULES [Suspect]
     Active Substance: GLYCOPYRRONIUM\INDACATEROL
     Indication: CHRONIC OBSTRUCTIVE PULMONARY DISEASE
     Dosage: UNK
     Route: 055
  2. KIPRES [Concomitant]
     Active Substance: MONTELUKAST SODIUM
     Indication: ASTHMA
     Dosage: 1 DF, QD
     Route: 048
     Dates: start: 20190105
  3. ENERZAIR [Suspect]
     Active Substance: GLYCOPYRROLATE\INDACATEROL\MOMETASONE FUROATE
     Indication: ASTHMA
     Dosage: HIGH DOSE 1 DF, QD
     Route: 055
     Dates: start: 20201217
  4. EDIROL [Concomitant]
     Active Substance: ELDECALCITOL
     Indication: OSTEOPOROSIS
     Dosage: 1 DF, QD
     Route: 048
     Dates: start: 20190312
  5. THEO?DUR [Concomitant]
     Active Substance: THEOPHYLLINE ANHYDROUS
     Indication: DYSPNOEA
     Dosage: 100 MG, BID
     Route: 048
     Dates: start: 20190105
  6. ASTOMIN [Concomitant]
     Indication: ASTHMA
     Dosage: 10 MG, TID
     Route: 048
     Dates: start: 20190819
  7. THEO?DUR [Concomitant]
     Active Substance: THEOPHYLLINE ANHYDROUS
     Indication: ASTHMA
  8. ASTOMIN [Concomitant]
     Indication: CHRONIC OBSTRUCTIVE PULMONARY DISEASE
  9. BILASTINE [Concomitant]
     Active Substance: BILASTINE
     Indication: RHINITIS ALLERGIC
     Dosage: 1 DF, QD
     Route: 048
     Dates: start: 20190625

REACTIONS (12)
  - Cough [Recovering/Resolving]
  - Dyspnoea exertional [Unknown]
  - Nasopharyngitis [Unknown]
  - Wheezing [Recovering/Resolving]
  - Pneumonia [Unknown]
  - Plasma cell myeloma [Unknown]
  - Rhinorrhoea [Recovering/Resolving]
  - Asthma [Unknown]
  - Oxygen saturation decreased [Unknown]
  - Rhinitis [Unknown]
  - Pyrexia [Recovered/Resolved]
  - Asthma-chronic obstructive pulmonary disease overlap syndrome [Unknown]

NARRATIVE: CASE EVENT DATE: 20210207
